FAERS Safety Report 22049920 (Version 2)
Quarter: 2023Q4

REPORT INFORMATION
  Report Type: Spontaneous
  Country: US (occurrence: US)
  Receive Date: 20230301
  Receipt Date: 20231120
  Transmission Date: 20240109
  Serious: Yes (Other)
  Sender: FDA-Public Use
  Company Number: US-drreddys-SPO/USA/23/0161486

PATIENT
  Age: 15 Year
  Sex: Female

DRUGS (3)
  1. DEXAMETHASONE [Suspect]
     Active Substance: DEXAMETHASONE
     Indication: Nausea
  2. OLAPARIB [Concomitant]
     Active Substance: OLAPARIB
     Indication: Gastrointestinal stromal tumour
     Dosage: 200 MG TWICE A DAY X 7 DAYS IN 21-DAY CYCLES
  3. TEMOZOLOMIDE [Concomitant]
     Active Substance: TEMOZOLOMIDE
     Indication: Gastrointestinal stromal tumour
     Dosage: 200 MG TWICE A DAY X 7 DAYS IN 21-DAY CYCLES

REACTIONS (2)
  - Substance-induced psychotic disorder [Unknown]
  - Product use in unapproved indication [Unknown]
